FAERS Safety Report 4771208-0 (Version None)
Quarter: 2005Q3

REPORT INFORMATION
  Report Type: 
  Country: None (occurrence: None)
  Receive Date: 20050914
  Receipt Date: 20050829
  Transmission Date: 20060218
  Serious: Yes (Other)
  Sender: FDA-Public Use
  Company Number: USA041184229

PATIENT
  Sex: Female
  Weight: 124 kg

DRUGS (3)
  1. CYMBALTA [Suspect]
     Indication: DEPRESSION
     Dosage: 120 MG DAY
     Dates: start: 20041001
  2. KLONOPIN [Concomitant]
  3. NEXIUM [Concomitant]

REACTIONS (11)
  - ANXIETY [None]
  - ASTHENOPIA [None]
  - CONVULSION [None]
  - CRYING [None]
  - DEHYDRATION [None]
  - DEPRESSION [None]
  - DRY EYE [None]
  - NAUSEA [None]
  - PAROSMIA [None]
  - POLLAKIURIA [None]
  - TARDIVE DYSKINESIA [None]
